FAERS Safety Report 5001400-1 (Version None)
Quarter: 2006Q2

REPORT INFORMATION
  Report Type: 
  Country: None (occurrence: None)
  Receive Date: 20060512
  Receipt Date: 20050621
  Transmission Date: 20061013
  Serious: Yes (Hospitalization)
  Sender: FDA-Public Use
  Company Number: US-MERCK-0506USA03342

PATIENT
  Age: 62 Year
  Sex: Male
  Weight: 77 kg

DRUGS (3)
  1. VIOXX [Suspect]
     Indication: ARTHRITIS
     Route: 048
     Dates: start: 20020801, end: 20030801
  2. NEXIUM [Concomitant]
     Route: 065
  3. LEVOXYL [Concomitant]
     Route: 065

REACTIONS (3)
  - DYSPEPSIA [None]
  - MYOCARDIAL INFARCTION [None]
  - THYROID DISORDER [None]
